FAERS Safety Report 9796542 (Version 2)
Quarter: 2014Q1

REPORT INFORMATION
  Report Type: Spontaneous
  Country: US (occurrence: US)
  Receive Date: 20140103
  Receipt Date: 20140103
  Transmission Date: 20141002
  Serious: Yes (Hospitalization, Other)
  Sender: FDA-Public Use
  Company Number: US-INCYTE CORPORATION-2013IN002828

PATIENT
  Age: 66 Year
  Sex: Male

DRUGS (4)
  1. JAKAFI [Suspect]
     Indication: MYELOPROLIFERATIVE DISORDER
     Dosage: 15 MG, BID
     Route: 048
     Dates: start: 20131023, end: 20131120
  2. JAKAFI [Suspect]
     Dosage: UNSPECIFIED
     Route: 048
  3. BABY ASPIRIN [Concomitant]
  4. FLOMAX                             /00889901/ [Concomitant]

REACTIONS (2)
  - Erythema marginatum [Unknown]
  - Anaemia [Unknown]
